FAERS Safety Report 15241298 (Version 2)
Quarter: 2018Q4

REPORT INFORMATION
  Report Type: Spontaneous
  Country: US (occurrence: US)
  Receive Date: 20180805
  Receipt Date: 20181118
  Transmission Date: 20190204
  Serious: No
  Sender: FDA-Public Use
  Company Number: US-JNJFOC-20180638038

PATIENT
  Age: 69 Year
  Sex: Female
  Weight: 108.86 kg

DRUGS (1)
  1. NIZORAL A-D [Suspect]
     Active Substance: KETOCONAZOLE
     Indication: SKIN ULCER
     Dosage: DIME SIZED AMOUNT, EVERY OTHER DAY
     Route: 061
     Dates: start: 20180618

REACTIONS (1)
  - Intentional product misuse [Unknown]
